FAERS Safety Report 6211868-0 (Version None)
Quarter: 2009Q2

REPORT INFORMATION
  Report Type: 
  Country: None (occurrence: None)
  Receive Date: 20090528
  Receipt Date: 20090518
  Transmission Date: 20091009
  Serious: Yes (Other)
  Sender: FDA-Public Use
  Company Number: 2009212319

PATIENT
  Sex: Male
  Weight: 2 kg

DRUGS (6)
  1. FRAGMIN [Suspect]
     Dosage: IU, 2X/DAY,  TRANSPLACENTAL
     Route: 064
  2. UNASYN [Suspect]
     Dosage: 1.5 G, 4X/DAY, TRANSPLACENTAL
     Route: 064
  3. AUGMENTIN [Suspect]
     Dosage: TRANSPLACENTAL
     Route: 064
  4. MAGNESIUM SULFATE [Suspect]
     Dosage: TRANSPLACENTAL
     Route: 064
  5. CEFOTAXIME SODIUM [Suspect]
     Dosage: TRANSPLACENTAL
     Route: 064
  6. ROVAMYCINE (SPIRAMYCIN) [Suspect]
     Dosage: TRANSPLACENTAL
     Route: 064

REACTIONS (4)
  - APGAR SCORE LOW [None]
  - CAESAREAN SECTION [None]
  - MATERNAL DRUGS AFFECTING FOETUS [None]
  - PREMATURE BABY [None]
